FAERS Safety Report 8161920-8 (Version None)
Quarter: 2012Q1

REPORT INFORMATION
  Report Type: 
  Country: None (occurrence: None)
  Receive Date: 20120224
  Receipt Date: 20120213
  Transmission Date: 20120608
  Serious: Yes (Death, Life-Threatening)
  Sender: FDA-Public Use
  Company Number: US-ELI_LILLY_AND_COMPANY-US201202003923

PATIENT
  Age: 60 Year
  Sex: Female

DRUGS (5)
  1. ZOLPIDEM [Concomitant]
  2. METHADONE HCL [Concomitant]
  3. ETHANOL [Concomitant]
  4. PANTOPRAZOLE [Concomitant]
  5. DULOXETIME HYDROCHLORIDE [Suspect]

REACTIONS (2)
  - COMPLETED SUICIDE [None]
  - CARDIO-RESPIRATORY ARREST [None]
